FAERS Safety Report 6393199-1 (Version None)
Quarter: 2009Q4

REPORT INFORMATION
  Report Type: 
  Country: None (occurrence: None)
  Receive Date: 20091008
  Receipt Date: 20090929
  Transmission Date: 20100525
  Serious: Yes (Other)
  Sender: FDA-Public Use
  Company Number: US-PURDUE-USA-2009-0040113

PATIENT
  Age: 60 Year
  Sex: Male

DRUGS (5)
  1. MORPHINE SULFATE (SIMILAR TO NDA 19-516) [Suspect]
     Indication: DRUG USE FOR UNKNOWN INDICATION
  2. UNKNOWN [Suspect]
     Indication: DRUG USE FOR UNKNOWN INDICATION
  3. PERCOCET [Suspect]
     Indication: DRUG USE FOR UNKNOWN INDICATION
  4. CEFAZOLIN [Suspect]
     Indication: DRUG USE FOR UNKNOWN INDICATION
  5. WARFARIN SODIUM [Suspect]
     Indication: DRUG USE FOR UNKNOWN INDICATION

REACTIONS (1)
  - ATRIAL FIBRILLATION [None]
